FAERS Safety Report 17958913 (Version 1)
Quarter: 2020Q2

REPORT INFORMATION
  Report Type: Spontaneous
  Country: IT (occurrence: IT)
  Receive Date: 20200629
  Receipt Date: 20200629
  Transmission Date: 20200714
  Serious: Yes (Other)
  Sender: FDA-Public Use
  Company Number: IT-JNJFOC-20200625643

PATIENT
  Age: 60 Year
  Sex: Female

DRUGS (1)
  1. TOPIRAMATE. [Suspect]
     Active Substance: TOPIRAMATE
     Indication: CLUSTER HEADACHE
     Route: 048

REACTIONS (4)
  - Acute kidney injury [Unknown]
  - Treatment failure [Unknown]
  - Hydronephrosis [Unknown]
  - Nephrolithiasis [Unknown]
